FAERS Safety Report 9587258 (Version 3)
Quarter: 2013Q4

REPORT INFORMATION
  Report Type: Spontaneous
  Country: US (occurrence: US)
  Receive Date: 20131003
  Receipt Date: 20131028
  Transmission Date: 20140711
  Serious: No
  Sender: FDA-Public Use
  Company Number: US-009507513-1310USA000485

PATIENT
  Age: 58 Year
  Sex: Female
  Weight: 67.12 kg

DRUGS (2)
  1. CLARITIN REDITABS 12HR [Suspect]
     Indication: SINUS DISORDER
     Dosage: 5 MG, ONCE
     Route: 048
     Dates: start: 20130918
  2. CLARITIN REDITABS 12HR [Suspect]
     Indication: HYPERSENSITIVITY
     Dosage: 15 MG, Q12H
     Route: 048

REACTIONS (3)
  - Drug ineffective for unapproved indication [Unknown]
  - Off label use [Unknown]
  - Overdose [Unknown]
